FAERS Safety Report 20508634 (Version 1)
Quarter: 2022Q1

REPORT INFORMATION
  Report Type: Spontaneous
  Country: US (occurrence: None)
  Receive Date: 20220223
  Receipt Date: 20220223
  Transmission Date: 20220423
  Serious: Yes (Other)
  Sender: FDA-Public Use
  Company Number: None

PATIENT
  Age: 32 Year
  Sex: Female
  Weight: 53.2 kg

DRUGS (1)
  1. OXALIPLATIN [Suspect]
     Active Substance: OXALIPLATIN
     Indication: Colon cancer
     Dosage: OTHER FREQUENCY : EVERY 2 WEEKS;?
     Route: 042
     Dates: start: 20211228

REACTIONS (8)
  - Paraesthesia [None]
  - Cough [None]
  - Nasal congestion [None]
  - Rhinorrhoea [None]
  - Swollen tongue [None]
  - Lip swelling [None]
  - Nasal congestion [None]
  - Somnolence [None]

NARRATIVE: CASE EVENT DATE: 20220222
